FAERS Safety Report 23599404 (Version 3)
Quarter: 2024Q4

REPORT INFORMATION
  Report Type: Spontaneous
  Country: GB (occurrence: GB)
  Receive Date: 20240306
  Receipt Date: 20241004
  Transmission Date: 20250114
  Serious: Yes (Hospitalization, Other)
  Sender: TEVA
  Company Number: None

PATIENT
  Age: 68 Year
  Sex: Female
  Weight: 92 kg

DRUGS (80)
  1. IRBESARTAN [Suspect]
     Active Substance: IRBESARTAN
     Indication: Abdominal discomfort
     Dosage: 150 G, QD
     Route: 065
     Dates: start: 20100917
  2. IRBESARTAN [Suspect]
     Active Substance: IRBESARTAN
     Indication: Abdominal discomfort
     Dosage: 150 G, QD
     Route: 065
     Dates: start: 20100912
  3. IRBESARTAN [Suspect]
     Active Substance: IRBESARTAN
     Indication: Abdominal discomfort
     Dosage: 150 G, ONCE PER DAY
     Route: 065
     Dates: start: 20100917
  4. IRBESARTAN [Suspect]
     Active Substance: IRBESARTAN
     Indication: Abdominal discomfort
     Dosage: 150 G, ONCE PER DAY
     Route: 065
  5. IRBESARTAN [Suspect]
     Active Substance: IRBESARTAN
     Indication: Abdominal discomfort
     Dosage: 150 MG, ONCE PER DAY 150 MG, QD (150 MG, QD (DAILY))
     Route: 065
     Dates: start: 20100917
  6. IRBESARTAN [Suspect]
     Active Substance: IRBESARTAN
     Indication: Abdominal discomfort
     Dosage: 150 G, ONCE PER DAY
     Route: 065
     Dates: start: 20100917
  7. IRBESARTAN [Suspect]
     Active Substance: IRBESARTAN
     Indication: Abdominal discomfort
     Dosage: 150 MG, ONCE PER DAY
     Route: 065
     Dates: start: 20100912
  8. ZINC [Suspect]
     Active Substance: ZINC
     Indication: Depression
     Dosage: 750 MG, QD (DIETHYLDITHIOCARBAMATE)
     Route: 065
  9. ZINC [Suspect]
     Active Substance: ZINC
     Indication: Depression
     Dosage: 750 MG (DIETHYLDITHIOCARBAMATE)
     Route: 065
  10. CABERGOLINE [Concomitant]
     Active Substance: CABERGOLINE
     Indication: Empty sella syndrome
     Dosage: UNKNOWN
     Route: 065
  11. PHYLLOCONTIN [Suspect]
     Active Substance: AMINOPHYLLINE
     Indication: Product used for unknown indication
     Dosage: 400 MG, QD
     Route: 065
     Dates: start: 20100917
  12. PHYLLOCONTIN [Suspect]
     Active Substance: AMINOPHYLLINE
     Indication: Product used for unknown indication
     Dosage: 400 MG, QD
     Route: 065
     Dates: start: 20200917
  13. LACTOBACILLUS RHAMNOSUS [Suspect]
     Active Substance: LACTOBACILLUS RHAMNOSUS
     Indication: Abdominal discomfort
     Dosage: 750 MG
     Route: 065
  14. ORUVAIL [Concomitant]
     Active Substance: KETOPROFEN
     Indication: Empty sella syndrome
     Dosage: UNKNOWN
     Route: 065
  15. CARBAMAZEPINE [Suspect]
     Active Substance: CARBAMAZEPINE
     Indication: Depression
     Route: 065
     Dates: start: 20100917
  16. CARBAMAZEPINE [Suspect]
     Active Substance: CARBAMAZEPINE
     Indication: Depression
     Dosage: 750 MG, ONCE PER DAY (QD), 2750250 MG
     Route: 065
     Dates: start: 20210917
  17. THEOPHYLLINE [Suspect]
     Active Substance: THEOPHYLLINE
     Indication: Depression
     Dosage: 750 MG, QD
     Route: 065
  18. PROBIOTICS NOS [Suspect]
     Active Substance: PROBIOTICS NOS
     Indication: Depression
     Dosage: 750 MG, UNK
     Route: 065
  19. BIFIDOBACTERIUM LONGUM [Suspect]
     Active Substance: BIFIDOBACTERIUM LONGUM
     Indication: Abdominal discomfort
     Dosage: 750 MG
     Route: 065
  20. BIFIDOBACTERIUM LONGUM [Suspect]
     Active Substance: BIFIDOBACTERIUM LONGUM
     Indication: Abdominal discomfort
     Dosage: UNK,UNK
     Route: 065
  21. ACTIVATED CHARCOAL [Suspect]
     Active Substance: ACTIVATED CHARCOAL
     Indication: Product used for unknown indication
     Dosage: 750 ,UNK
     Route: 065
  22. ACTIVATED CHARCOAL [Suspect]
     Active Substance: ACTIVATED CHARCOAL
     Indication: Product used for unknown indication
     Dosage: 750 MG, ONCE PER DAY
     Route: 065
  23. ACTIVATED CHARCOAL [Suspect]
     Active Substance: ACTIVATED CHARCOAL
     Indication: Product used for unknown indication
     Dosage: 750 MG, UNK
     Route: 065
  24. SULFAGUANIDINE [Suspect]
     Active Substance: SULFAGUANIDINE
     Indication: Abdominal discomfort
     Dosage: 750 MG, QD
     Route: 065
  25. DOXYCYCLINE [Concomitant]
     Active Substance: DOXYCYCLINE
     Indication: Pulmonary pain
     Dosage: UNK,  UNK
  26. CETIRIZINE [Concomitant]
     Active Substance: CETIRIZINE HYDROCHLORIDE
     Indication: Abdominal discomfort
     Dosage: UNK,  UNK
  27. THEOPHYLLINE [Concomitant]
     Active Substance: THEOPHYLLINE
     Indication: Depression
     Dosage: 750 MG, QD
  28. ACTIVATED CHARCOAL [Concomitant]
     Active Substance: ACTIVATED CHARCOAL
     Indication: Product used for unknown indication
     Dosage: 750 MG, UNK
  29. AMOXICILLIN [Suspect]
     Active Substance: AMOXICILLIN
     Indication: Abdominal discomfort
     Dosage: 125 MG/ 5 ML
     Route: 065
     Dates: start: 20210904
  30. AMOXICILLIN [Suspect]
     Active Substance: AMOXICILLIN
     Indication: Abdominal discomfort
     Dosage: 25 MG (125 MG/ 5 ML)
     Route: 065
     Dates: start: 20210904
  31. VENLAFAXINE HYDROCHLORIDE [Suspect]
     Active Substance: VENLAFAXINE HYDROCHLORIDE
     Indication: Depression
     Route: 065
  32. GUANIDINE [Suspect]
     Active Substance: GUANIDINE
     Indication: Depression
     Dosage: UNK, QD (1,3-DIPHENYLGUANIDINE)
     Route: 065
  33. GUANIDINE [Suspect]
     Active Substance: GUANIDINE
     Indication: Depression
     Dosage: 750 MG, ONCE PER DAY (750 MG, QD(1,3-DIPHENYLGUANIDINE))
     Route: 065
  34. GUANIDINE [Suspect]
     Active Substance: GUANIDINE
     Indication: Depression
     Dosage: UNK,  UNK
     Route: 065
  35. GUANIDINE [Suspect]
     Active Substance: GUANIDINE
     Indication: Depression
     Dosage: UNK,  UNK (1,3-DIPHENYLGUANIDINE)
     Route: 065
  36. BENDROFLUMETHIAZIDE [Concomitant]
     Active Substance: BENDROFLUMETHIAZIDE
     Indication: Depression
     Dosage: 750 MG
     Route: 065
  37. CIPROFLOXACIN [Suspect]
     Active Substance: CIPROFLOXACIN
     Indication: Rheumatoid arthritis
     Dosage: UNK,  UNK
     Route: 065
  38. CIPROFLOXACIN [Suspect]
     Active Substance: CIPROFLOXACIN
     Indication: Rheumatoid arthritis
     Dosage: 1000 MG, ONCE PER DAY (1000 MILLIGRAM, QD, BATCH AND LOT TESTED AND FOUND WITHIN SPECIFICATIONS)
     Route: 065
     Dates: start: 20200917
  39. CIPROFLOXACIN [Suspect]
     Active Substance: CIPROFLOXACIN
     Indication: Rheumatoid arthritis
     Dosage: 1000 MG, ONCE PER DAY (1000 MILLIGRAM, QD, BATCH AND LOT TESTED AND FOUND WITHIN SPECIFICATIONS)
     Route: 065
     Dates: start: 20100917
  40. VENLAFAXINE [Suspect]
     Active Substance: VENLAFAXINE HYDROCHLORIDE
     Indication: Depression
     Dosage: 225 MG, QD
     Route: 065
  41. VENLAFAXINE [Suspect]
     Active Substance: VENLAFAXINE HYDROCHLORIDE
     Indication: Depression
     Dosage: 225 MG, QD
     Route: 065
  42. LEVOTHYROXINE [Concomitant]
     Active Substance: LEVOTHYROXINE
     Indication: Abdominal discomfort
     Dosage: UNK
     Route: 016
  43. CARBOCYSTEINE [Suspect]
     Active Substance: CARBOCYSTEINE
     Indication: Rheumatoid arthritis
     Dosage: 750 MG, QD
     Route: 065
     Dates: start: 20120917
  44. CARBOCYSTEINE [Suspect]
     Active Substance: CARBOCYSTEINE
     Indication: Rheumatoid arthritis
     Dosage: 750 MG, QD
     Route: 065
     Dates: start: 20210917
  45. CARBOCYSTEINE [Suspect]
     Active Substance: CARBOCYSTEINE
     Indication: Rheumatoid arthritis
     Dosage: 750 MG, QD
     Route: 065
     Dates: start: 20100917
  46. CARBOCYSTEINE [Suspect]
     Active Substance: CARBOCYSTEINE
     Indication: Rheumatoid arthritis
     Dosage: 750 MG, QD
     Route: 065
     Dates: start: 20200917
  47. CARBOCYSTEINE [Suspect]
     Active Substance: CARBOCYSTEINE
     Indication: Rheumatoid arthritis
     Dosage: UNK,  UNK
     Route: 065
  48. CARBOCYSTEINE [Suspect]
     Active Substance: CARBOCYSTEINE
     Indication: Rheumatoid arthritis
     Dosage: 750 MG
     Route: 065
  49. CARBOCYSTEINE [Suspect]
     Active Substance: CARBOCYSTEINE
     Indication: Rheumatoid arthritis
     Dosage: 750 MG, ONCE PER DAY
     Route: 065
  50. ENBREL [Suspect]
     Active Substance: ETANERCEPT
     Indication: Rheumatoid arthritis
     Dosage: 50 MILLIGRAM, Q.W., WEEKLY, SOLUTION FOR INJECTION IN PRE-FILLED PEN, MYCLIC PENS
     Route: 058
     Dates: start: 20100917
  51. ENBREL [Suspect]
     Active Substance: ETANERCEPT
     Indication: Rheumatoid arthritis
     Dosage: 50 MG, PER WEEK,QW, MYCLIC PEN
     Route: 065
     Dates: start: 20210917
  52. ENBREL [Suspect]
     Active Substance: ETANERCEPT
     Indication: Rheumatoid arthritis
     Dosage: UNK, UNK (MYCLIC PEN)
     Route: 065
  53. EZETIMIBE [Concomitant]
     Active Substance: EZETIMIBE
     Indication: Product used for unknown indication
     Dosage: UNK,  UNK
  54. EZETIMIBE [Concomitant]
     Active Substance: EZETIMIBE
     Indication: Product used for unknown indication
     Dosage: 50 MG, QW, MYCLIC PEN
     Dates: start: 20100917
  55. EZETIMIBE [Concomitant]
     Active Substance: EZETIMIBE
     Indication: Product used for unknown indication
     Dosage: 50 MG, QW, MYCLIC PEN
     Dates: start: 20210917
  56. OMEPRAZOLE [Suspect]
     Active Substance: OMEPRAZOLE
     Indication: Abdominal discomfort
     Dosage: 480 MILLIGRAM DAILY; 20 MG, 2X/DAY
     Route: 065
  57. OMEPRAZOLE [Suspect]
     Active Substance: OMEPRAZOLE
     Indication: Abdominal discomfort
     Dosage: 40 MG, QD (20 MG, 2X/DAY)
     Route: 065
     Dates: start: 20100917
  58. OMEPRAZOLE [Suspect]
     Active Substance: OMEPRAZOLE
     Indication: Abdominal discomfort
     Dosage: 20 MG, QD
     Route: 065
     Dates: start: 20100917
  59. OMEPRAZOLE [Suspect]
     Active Substance: OMEPRAZOLE
     Indication: Abdominal discomfort
     Dosage: 80 MG, QD
     Route: 065
     Dates: start: 20100917
  60. OMEPRAZOLE [Suspect]
     Active Substance: OMEPRAZOLE
     Indication: Abdominal discomfort
     Dosage: 20 MG, BID
     Route: 065
     Dates: start: 20200917
  61. OMEPRAZOLE [Suspect]
     Active Substance: OMEPRAZOLE
     Indication: Abdominal discomfort
     Dosage: 80 MG, QD
     Route: 065
     Dates: start: 20200917
  62. OMEPRAZOLE [Suspect]
     Active Substance: OMEPRAZOLE
     Indication: Abdominal discomfort
     Dosage: 20 MG, QD
     Route: 065
  63. OMEPRAZOLE [Suspect]
     Active Substance: OMEPRAZOLE
     Indication: Abdominal discomfort
     Route: 065
     Dates: start: 20200917
  64. OMEPRAZOLE [Suspect]
     Active Substance: OMEPRAZOLE
     Indication: Abdominal discomfort
     Dosage: 20 MG, BID
     Route: 065
  65. OMEPRAZOLE [Suspect]
     Active Substance: OMEPRAZOLE
     Indication: Abdominal discomfort
     Dosage: 80 MG, QD
     Route: 065
     Dates: start: 20100917
  66. OMEPRAZOLE [Suspect]
     Active Substance: OMEPRAZOLE
     Indication: Abdominal discomfort
     Dosage: 80 MG, QD
     Route: 065
     Dates: start: 20100917
  67. OMEPRAZOLE [Suspect]
     Active Substance: OMEPRAZOLE
     Indication: Abdominal discomfort
     Dosage: 40 MG, ONCE PER DAY (20 MG, 2X/DAY FOR STOMACH;)
     Route: 065
     Dates: start: 20100917
  68. OMEPRAZOLE [Suspect]
     Active Substance: OMEPRAZOLE
     Indication: Abdominal discomfort
     Dosage: 20 MG, 2 TIMES PER DAY (20 MG, 2X/DAY)
     Route: 065
     Dates: start: 20100917
  69. FOLIC ACID [Concomitant]
     Active Substance: FOLIC ACID
     Indication: Abdominal discomfort
     Dosage: UNK,  UNK
  70. ACTIVATED CHARCOAL [Concomitant]
     Active Substance: ACTIVATED CHARCOAL
     Indication: Product used for unknown indication
     Dosage: 750 MG,  UNK
  71. METHOTREXATE [Suspect]
     Active Substance: METHOTREXATE
     Indication: Rheumatoid arthritis
     Dosage: 17.5 MG, PER WEEK (UNK UNK, WEEKLY (AT 17.5, WEEKLY))
     Route: 065
     Dates: start: 20100917
  72. METHOTREXATE [Suspect]
     Active Substance: METHOTREXATE
     Indication: Rheumatoid arthritis
     Dosage: UNK, PER WEEK (UNK UNK, QW)
     Route: 065
  73. METHOTREXATE [Suspect]
     Active Substance: METHOTREXATE
     Indication: Rheumatoid arthritis
     Dosage: 18 MG, PER WEEK (18 MG, QW (UNK UNK, WEEKLY (AT 17.5, WEEKLY))
     Route: 065
     Dates: start: 20100917
  74. METHOTREXATE [Suspect]
     Active Substance: METHOTREXATE
     Indication: Rheumatoid arthritis
     Dosage: UNK,UNK
     Route: 065
  75. METHOTREXATE [Suspect]
     Active Substance: METHOTREXATE
     Indication: Rheumatoid arthritis
     Dosage: 18 MG, PER WEEK
     Route: 065
  76. PHYLLOCONTIN [Suspect]
     Active Substance: AMINOPHYLLINE
     Indication: Product used for unknown indication
     Dosage: 400 MG, ONCE PER DAY
     Route: 065
  77. PHYLLOCONTIN [Suspect]
     Active Substance: AMINOPHYLLINE
     Indication: Product used for unknown indication
     Dosage: 400 MG, ONCE PER DAY
     Route: 065
     Dates: start: 20200917
  78. PHYLLOCONTIN [Suspect]
     Active Substance: AMINOPHYLLINE
     Indication: Product used for unknown indication
     Dosage: 400 MG, ONCE PER DAY
     Route: 065
     Dates: start: 20100917
  79. AMINOPHYLLINE [Suspect]
     Active Substance: AMINOPHYLLINE
     Indication: Product used for unknown indication
     Dosage: 400 MG, ONCE PER DAY
     Route: 065
     Dates: start: 20100917
  80. AMINOPHYLLINE [Suspect]
     Active Substance: AMINOPHYLLINE
     Indication: Product used for unknown indication
     Dosage: 400 MG, ONCE PER DAY
     Route: 065
     Dates: start: 20200917

REACTIONS (13)
  - Lower respiratory tract infection [Not Recovered/Not Resolved]
  - Intentional product misuse [Unknown]
  - Amyloid arthropathy [Unknown]
  - Arthropathy [Unknown]
  - Rash [Not Recovered/Not Resolved]
  - Product dose omission issue [Unknown]
  - Overdose [Unknown]
  - Off label use [Unknown]
  - Drug abuse [Unknown]
  - Abdominal discomfort [Unknown]
  - Obesity [Unknown]
  - Pulmonary pain [Unknown]
  - Knee arthroplasty [Unknown]

NARRATIVE: CASE EVENT DATE: 20201001
